FAERS Safety Report 11092502 (Version 1)
Quarter: 2015Q2

REPORT INFORMATION
  Report Type: Spontaneous
  Country: US (occurrence: None)
  Receive Date: 20150505
  Receipt Date: 20150505
  Transmission Date: 20150821
  Serious: No
  Sender: FDA-Public Use
  Company Number: None

PATIENT
  Age: 52 Year
  Sex: Female
  Weight: 58.97 kg

DRUGS (15)
  1. LIDOCAINE. [Suspect]
     Active Substance: LIDOCAINE
     Indication: PAIN
     Dosage: 1 PATCH EVERY 12 HRS ON THE SKIN AT SITE OF PAIN
     Dates: start: 201312, end: 201404
  2. GU [Concomitant]
  3. PAIN RELIEVER [Concomitant]
     Active Substance: ACETAMINOPHEN\ASPIRIN\SALICYLAMIDE
  4. ECHINACEA [Concomitant]
     Active Substance: ECHINACEA, UNSPECIFIED
  5. WELLBUTRIN [Concomitant]
     Active Substance: BUPROPION HYDROCHLORIDE
  6. METHACARRHEMAE [Concomitant]
  7. MILK THISTLE [Concomitant]
     Active Substance: MILK THISTLE
  8. TUMERIC [Concomitant]
  9. LOSARTAN [Concomitant]
     Active Substance: LOSARTAN
  10. EFEXXOR [Concomitant]
  11. TART CHERRY [Concomitant]
  12. IBIPROPHEN [Concomitant]
  13. TENS UNIT [Concomitant]
  14. MOBIC [Concomitant]
     Active Substance: MELOXICAM
  15. COREQ [Concomitant]

REACTIONS (3)
  - Drug effect decreased [None]
  - Product substitution issue [None]
  - Product adhesion issue [None]

NARRATIVE: CASE EVENT DATE: 20140403
